FAERS Safety Report 8886305 (Version 1)
Quarter: 2012Q4

REPORT INFORMATION
  Report Type: 
  Country: GB (occurrence: GB)
  Receive Date: 20121105
  Receipt Date: 20121105
  Transmission Date: 20130627
  Serious: Yes (Life-Threatening, Hospitalization)
  Sender: FDA-Public Use
  Company Number: GB-ASTRAZENECA-2012SE83254

PATIENT
  Age: 61 Year

DRUGS (3)
  1. OMEPRAZOLE [Suspect]
     Route: 048
     Dates: start: 20120315
  2. PIPERACILLIN [Suspect]
     Route: 041
     Dates: start: 20120421
  3. TAZOBACTAM [Suspect]
     Route: 041
     Dates: start: 20120421

REACTIONS (1)
  - Clostridium test positive [Recovered/Resolved]
